FAERS Safety Report 15333886 (Version 2)
Quarter: 2018Q3

REPORT INFORMATION
  Report Type: Report from Study
  Country: US (occurrence: US)
  Receive Date: 20180830
  Receipt Date: 20180912
  Transmission Date: 20181010
  Serious: Yes (Death, Life-Threatening, Hospitalization, Other)
  Sender: FDA-Public Use
  Company Number: PHHY2018US085415

PATIENT
  Age: 15 Year
  Sex: Male
  Weight: 63 kg

DRUGS (1)
  1. KYMRIAH [Suspect]
     Active Substance: TISAGENLECLEUCEL
     Indication: ACUTE LYMPHOCYTIC LEUKAEMIA RECURRENT
     Dosage: 1 DF, ONCE/SINGLE
     Route: 042
     Dates: start: 20180626

REACTIONS (11)
  - Neurotoxicity [Recovering/Resolving]
  - Pulmonary haemorrhage [Fatal]
  - Candida infection [Recovered/Resolved with Sequelae]
  - Staphylococcal infection [Recovered/Resolved with Sequelae]
  - Cytokine release syndrome [Recovered/Resolved with Sequelae]
  - Tumour lysis syndrome [Recovered/Resolved with Sequelae]
  - Neutropenia [Unknown]
  - Acute kidney injury [Recovering/Resolving]
  - Aspergillus infection [Recovered/Resolved with Sequelae]
  - Acute lymphocytic leukaemia recurrent [Unknown]
  - Bone marrow failure [Not Recovered/Not Resolved]

NARRATIVE: CASE EVENT DATE: 20180701
